FAERS Safety Report 22153119 (Version 3)
Quarter: 2023Q2

REPORT INFORMATION
  Report Type: Spontaneous
  Country: AU (occurrence: AU)
  Receive Date: 20230329
  Receipt Date: 20230424
  Transmission Date: 20230722
  Serious: Yes (Death, Other)
  Sender: FDA-Public Use
  Company Number: AU-BAYER-2023A041538

PATIENT
  Age: 82 Year
  Sex: Male

DRUGS (3)
  1. NUBEQA [Suspect]
     Active Substance: DAROLUTAMIDE
     Indication: Hormone-dependent prostate cancer
     Dosage: 600 MG, QD
     Dates: start: 20221202, end: 20230218
  2. MORPHINE [Concomitant]
     Active Substance: MORPHINE
  3. MIDAZOLAM [Concomitant]
     Active Substance: MIDAZOLAM

REACTIONS (7)
  - Prostate cancer metastatic [Fatal]
  - Pyelonephritis [Recovered/Resolved]
  - Acute kidney injury [Recovered/Resolved]
  - Delirium [Not Recovered/Not Resolved]
  - Hypervolaemia [Recovered/Resolved]
  - General physical health deterioration [Not Recovered/Not Resolved]
  - Off label use [None]

NARRATIVE: CASE EVENT DATE: 20221202
